FAERS Safety Report 24019456 (Version 2)
Quarter: 2024Q3

REPORT INFORMATION
  Report Type: Spontaneous
  Country: PL (occurrence: PL)
  Receive Date: 20240627
  Receipt Date: 20240725
  Transmission Date: 20241016
  Serious: Yes (Death, Hospitalization, Other)
  Sender: INCYTE
  Company Number: PL-INCYTE CORPORATION-2024IN006808

PATIENT

DRUGS (1)
  1. TAFASITAMAB [Suspect]
     Active Substance: TAFASITAMAB
     Indication: Diffuse large B-cell lymphoma
     Dosage: 600 MILLIGRAM
     Route: 042
     Dates: start: 20231010

REACTIONS (1)
  - Pneumonia [Fatal]
